FAERS Safety Report 8063789-9 (Version None)
Quarter: 2012Q1

REPORT INFORMATION
  Report Type: 
  Country: None (occurrence: None)
  Receive Date: 20120123
  Receipt Date: 20120112
  Transmission Date: 20120608
  Serious: Yes (Hospitalization, Disabling)
  Sender: FDA-Public Use
  Company Number: US-MERCK-1107USA03277

PATIENT
  Age: 60 Year
  Sex: Female
  Weight: 74 kg

DRUGS (12)
  1. FOSAMAX [Suspect]
     Indication: OSTEOPOROSIS PROPHYLAXIS
     Route: 048
     Dates: start: 19981101, end: 20040309
  2. CALCIUM (UNSPECIFIED) [Concomitant]
     Route: 048
     Dates: start: 19950101
  3. FOSAMAX [Suspect]
     Route: 048
     Dates: start: 20051202, end: 20051201
  4. FOSAMAX [Suspect]
     Route: 048
     Dates: start: 20080304, end: 20091109
  5. FOSAMAX [Suspect]
     Route: 048
     Dates: start: 20050509, end: 20080303
  6. FOSAMAX [Suspect]
     Route: 048
     Dates: start: 20050509, end: 20080303
  7. FOSAMAX [Suspect]
     Route: 048
     Dates: start: 20051202, end: 20051201
  8. FOSAMAX [Suspect]
     Route: 048
     Dates: start: 20080304, end: 20091109
  9. FOSAMAX [Suspect]
     Route: 048
     Dates: start: 20090301, end: 20100101
  10. FOSAMAX [Suspect]
     Route: 048
     Dates: start: 20090301, end: 20100101
  11. FOSAMAX [Suspect]
     Indication: OSTEOPOROSIS
     Route: 048
     Dates: start: 19981101, end: 20040309
  12. VITAMIN D (UNSPECIFIED) [Concomitant]
     Route: 048
     Dates: start: 19950101

REACTIONS (31)
  - ARTHRITIS [None]
  - NASAL SEPTUM DEVIATION [None]
  - LYMPHOEDEMA [None]
  - RHINITIS [None]
  - SEASONAL ALLERGY [None]
  - FATIGUE [None]
  - CELLULITIS [None]
  - SLEEP APNOEA SYNDROME [None]
  - LOW TURNOVER OSTEOPATHY [None]
  - EPICONDYLITIS [None]
  - HELICOBACTER INFECTION [None]
  - ARTHRALGIA [None]
  - HYPERLIPIDAEMIA [None]
  - NEUROPATHY PERIPHERAL [None]
  - FRACTURE NONUNION [None]
  - BURSITIS [None]
  - HERPES ZOSTER [None]
  - LIGAMENT SPRAIN [None]
  - OSTEOARTHRITIS [None]
  - DRUG INTOLERANCE [None]
  - FEMUR FRACTURE [None]
  - BONE DISORDER [None]
  - GASTROOESOPHAGEAL REFLUX DISEASE [None]
  - RESTLESS LEGS SYNDROME [None]
  - DYSPEPSIA [None]
  - ERYTHEMA [None]
  - AVULSION FRACTURE [None]
  - THYROID NEOPLASM [None]
  - CHEST WALL CYST [None]
  - HYPERTENSION [None]
  - SINUSITIS [None]
